FAERS Safety Report 6260032-8 (Version None)
Quarter: 2009Q3

REPORT INFORMATION
  Report Type: 
  Country: None (occurrence: None)
  Receive Date: 20090708
  Receipt Date: 20090626
  Transmission Date: 20100115
  Serious: Yes (Hospitalization)
  Sender: FDA-Public Use
  Company Number: US-ELI_LILLY_AND_COMPANY-US200906006607

PATIENT
  Sex: Female

DRUGS (1)
  1. CYMBALTA [Suspect]
     Indication: MAJOR DEPRESSION
     Dosage: 30 MG, DAILY (1/D)
     Dates: start: 20050101, end: 20090605

REACTIONS (5)
  - BLOOD SODIUM DECREASED [None]
  - CHEST PAIN [None]
  - DIAPHRAGMATIC DISORDER [None]
  - FLUID RETENTION [None]
  - HYPONATRAEMIA [None]
